APPROVED DRUG PRODUCT: FENTANYL CITRATE PRESERVATIVE FREE
Active Ingredient: FENTANYL CITRATE
Strength: EQ 0.05MG BASE/ML
Dosage Form/Route: INJECTABLE;INJECTION
Application: A074917 | Product #001
Applicant: DR REDDYS LABORATORIES LTD
Approved: Feb 3, 1998 | RLD: No | RS: No | Type: DISCN